FAERS Safety Report 5876195-X (Version None)
Quarter: 2008Q3

REPORT INFORMATION
  Report Type: 
  Country: None (occurrence: None)
  Receive Date: 20080910
  Receipt Date: 20080902
  Transmission Date: 20090109
  Serious: Yes (Death)
  Sender: FDA-Public Use
  Company Number: US-TYCO HEALTHCARE/MALLINCKRODT-T200801441

PATIENT

DRUGS (1)
  1. METHADOSE DISPERSIBLE [Suspect]
     Dosage: UNK, UNK

REACTIONS (1)
  - DEATH [None]
